FAERS Safety Report 21348248 (Version 1)
Quarter: 2022Q3

REPORT INFORMATION
  Report Type: Spontaneous
  Country: CA (occurrence: CA)
  Receive Date: 20220919
  Receipt Date: 20220919
  Transmission Date: 20221027
  Serious: Yes (Other)
  Sender: FDA-Public Use
  Company Number: CA-BRISTOL-MYERS SQUIBB COMPANY-2022-107760

PATIENT
  Age: 65 Year
  Sex: Female

DRUGS (2)
  1. ORENCIA [Suspect]
     Active Substance: ABATACEPT
     Indication: Rheumatoid arthritis
     Route: 065
  2. VAXZEVRIA [Concomitant]
     Active Substance: AZD-1222
     Indication: COVID-19 immunisation
     Dosage: VAXZEVRIA VIAL CONTAINS 10 DOSES OF 0.5ML
     Route: 030

REACTIONS (8)
  - Eye infection viral [Unknown]
  - Eye pruritus [Unknown]
  - Eye swelling [Unknown]
  - Glaucoma [Unknown]
  - Headache [Unknown]
  - Inappropriate schedule of product administration [Unknown]
  - Malaise [Unknown]
  - Tremor [Unknown]
